FAERS Safety Report 6025694-9 (Version None)
Quarter: 2008Q4

REPORT INFORMATION
  Report Type: 
  Country: None (occurrence: None)
  Receive Date: 20081231
  Receipt Date: 20081225
  Transmission Date: 20090506
  Serious: Yes (Life-Threatening, Hospitalization)
  Sender: FDA-Public Use
  Company Number: JP-GENENTECH-267570

PATIENT
  Sex: Female

DRUGS (5)
  1. RITUXAN [Suspect]
     Indication: LYMPHOMA
     Dosage: 600 MG, UNK
     Route: 042
     Dates: start: 20080227
  2. PIRARUBICIN [Suspect]
     Indication: LYMPHOMA
     Dosage: 40 MG, UNK
     Route: 042
     Dates: start: 20080227
  3. ENDOXAN [Suspect]
     Indication: LYMPHOMA
     Dosage: 700 MG, UNK
     Route: 042
     Dates: start: 20080227
  4. ONCOVIN [Suspect]
     Indication: LYMPHOMA
     Dosage: 1.4 MG, UNK
     Route: 042
     Dates: start: 20080227
  5. PREDONINE [Suspect]
     Indication: LYMPHOMA
     Dosage: 80 MG, UNK
     Route: 048
     Dates: start: 20080227

REACTIONS (1)
  - HEPATITIS B [None]
